FAERS Safety Report 8062946-5 (Version None)
Quarter: 2012Q1

REPORT INFORMATION
  Report Type: 
  Country: None (occurrence: None)
  Receive Date: 20120123
  Receipt Date: 20120123
  Transmission Date: 20120608
  Serious: Yes (Life-Threatening, Hospitalization)
  Sender: FDA-Public Use
  Company Number: None

PATIENT
  Sex: Female
  Weight: 68.038 kg

DRUGS (2)
  1. LETROZOLE [Concomitant]
     Indication: BREAST CANCER
     Dosage: 1TAB
     Route: 048
     Dates: start: 20110611, end: 20111227
  2. FEMARA [Suspect]
     Indication: BREAST CANCER
     Dosage: 1 TAB
     Route: 048
     Dates: start: 20090528, end: 20110610

REACTIONS (2)
  - PULMONARY EMBOLISM [None]
  - PRODUCT SUBSTITUTION ISSUE [None]
